FAERS Safety Report 10275442 (Version 1)
Quarter: 2014Q3

REPORT INFORMATION
  Report Type: Report from Study
  Country: BR (occurrence: BR)
  Receive Date: 20140703
  Receipt Date: 20140703
  Transmission Date: 20150326
  Serious: Yes (Death, Hospitalization, Other)
  Sender: FDA-Public Use
  Company Number: BR-BAYER-2014-095922

PATIENT
  Age: 54 Year
  Sex: Male
  Weight: 83 kg

DRUGS (1)
  1. NEXAVAR [Suspect]
     Active Substance: SORAFENIB
     Indication: HEPATIC CANCER
     Dosage: 400 MG, BID
     Route: 048
     Dates: start: 20140520, end: 20140603

REACTIONS (3)
  - Ascites [Not Recovered/Not Resolved]
  - Weight decreased [Not Recovered/Not Resolved]
  - Hepatic cancer [Fatal]

NARRATIVE: CASE EVENT DATE: 2014
